FAERS Safety Report 15173301 (Version 2)
Quarter: 2018Q3

REPORT INFORMATION
  Report Type: Spontaneous
  Country: US (occurrence: US)
  Receive Date: 20180720
  Receipt Date: 20180903
  Transmission Date: 20181010
  Serious: No
  Sender: FDA-Public Use
  Company Number: US-ASTRAZENECA-2018SE82916

PATIENT
  Age: 731 Month
  Sex: Female

DRUGS (2)
  1. SYMBICORT [Suspect]
     Active Substance: BUDESONIDE\FORMOTEROL FUMARATE DIHYDRATE
     Indication: ASTHMA
     Dosage: 80 4.5 MCG FOR ASTHMA AND COPD, 2 PUFFS IN THE MORNING AND 2 PUFFS IN THE EVENING , TWO TIMES A DAY
     Route: 055
     Dates: start: 201803
  2. SYMBICORT [Suspect]
     Active Substance: BUDESONIDE\FORMOTEROL FUMARATE DIHYDRATE
     Indication: CHRONIC OBSTRUCTIVE PULMONARY DISEASE
     Dosage: 80 4.5 MCG FOR ASTHMA AND COPD, 2 PUFFS IN THE MORNING AND 2 PUFFS IN THE EVENING , TWO TIMES A DAY
     Route: 055
     Dates: start: 201803

REACTIONS (7)
  - Lower respiratory tract infection [Not Recovered/Not Resolved]
  - Intentional device misuse [Unknown]
  - Feeling abnormal [Not Recovered/Not Resolved]
  - Device failure [Unknown]
  - Dyspnoea [Not Recovered/Not Resolved]
  - Product use in unapproved indication [Unknown]
  - Off label use [Not Recovered/Not Resolved]

NARRATIVE: CASE EVENT DATE: 201803
